FAERS Safety Report 10228381 (Version 1)
Quarter: 2014Q2

REPORT INFORMATION
  Report Type: Spontaneous
  Country: US (occurrence: None)
  Receive Date: 20140505
  Receipt Date: 20140505
  Transmission Date: 20141212
  Serious: No
  Sender: FDA-Public Use
  Company Number: US-015043

PATIENT
  Age: 72 Year
  Sex: Female
  Weight: 48.08 kg

DRUGS (3)
  1. PICO-SALAX (NOT SPECIFIED) [Suspect]
     Indication: BOWEL PREPARATION
     Dosage: FIRST PACKET: 6:00 PM?
     Route: 048
     Dates: start: 20140414, end: 20140414
  2. DULCOLAX /00064401/ [Concomitant]
  3. MIRLALAX /00754501/ [Concomitant]

REACTIONS (4)
  - Vaginal haemorrhage [None]
  - Discomfort [None]
  - Treatment noncompliance [None]
  - Abdominal pain upper [None]
